FAERS Safety Report 23778544 (Version 1)
Quarter: 2024Q2

REPORT INFORMATION
  Report Type: Spontaneous
  Country: US (occurrence: None)
  Receive Date: 20240423
  Receipt Date: 20240423
  Transmission Date: 20240715
  Serious: Yes (Hospitalization)
  Sender: FDA-Public Use
  Company Number: None

PATIENT
  Age: 78 Year
  Sex: Male
  Weight: 86 kg

DRUGS (1)
  1. MIRTAZAPINE [Suspect]
     Active Substance: MIRTAZAPINE
     Indication: Affective disorder
     Dosage: 7.5MG AT BEDTIME PO
     Route: 048
     Dates: start: 20230316, end: 20230403

REACTIONS (4)
  - Anaphylactic shock [None]
  - Agitation [None]
  - Nightmare [None]
  - Psychotic disorder [None]

NARRATIVE: CASE EVENT DATE: 20230401
